FAERS Safety Report 8795925 (Version 1)
Quarter: 2012Q4

REPORT INFORMATION
  Report Type: 
  Country: US (occurrence: US)
  Receive Date: 20120919
  Receipt Date: 20120919
  Transmission Date: 20130627
  Serious: Yes (Other)
  Sender: FDA-Public Use
  Company Number: US-PFIZER INC-2012231228

PATIENT
  Sex: Female

DRUGS (3)
  1. ZOLOFT [Suspect]
     Dosage: UNK
     Dates: start: 20021120
  2. LIPITOR [Suspect]
     Dosage: UNK
     Dates: start: 20021120
  3. NEURONTIN [Suspect]
     Dosage: UNK
     Dates: start: 20021120

REACTIONS (1)
  - Blindness [Unknown]
